FAERS Safety Report 9129235 (Version 1)
Quarter: 2013Q1

REPORT INFORMATION
  Report Type: Spontaneous
  Country: CN (occurrence: CN)
  Receive Date: 20130125
  Receipt Date: 20130125
  Transmission Date: 20140127
  Serious: Yes (Hospitalization)
  Sender: FDA-Public Use
  Company Number: PHHY2012CN077640

PATIENT
  Age: 32 Year
  Sex: Male

DRUGS (4)
  1. SEBIVO [Suspect]
     Indication: HEPATITIS B
     Dosage: 1 DF, DAILY
     Route: 048
     Dates: start: 20110901, end: 20120904
  2. VITAMIN B12 [Concomitant]
  3. VITAMIN B1 [Concomitant]
  4. VITAMIN C [Concomitant]

REACTIONS (11)
  - Abdominal discomfort [Recovering/Resolving]
  - Weight decreased [Recovering/Resolving]
  - Vomiting [Recovered/Resolved]
  - Transaminases abnormal [Recovering/Resolving]
  - Asthenia [Recovering/Resolving]
  - Fatigue [Recovering/Resolving]
  - Blood creatine phosphokinase increased [Recovering/Resolving]
  - Myalgia [Recovered/Resolved]
  - Pain in extremity [Recovering/Resolving]
  - Muscular weakness [Recovering/Resolving]
  - Arthralgia [Recovering/Resolving]
